FAERS Safety Report 8952586 (Version 1)
Quarter: 2012Q4

REPORT INFORMATION
  Report Type: 
  Country: FR (occurrence: FR)
  Receive Date: 20121205
  Receipt Date: 20121205
  Transmission Date: 20130627
  Serious: Yes (Death, Life-Threatening)
  Sender: FDA-Public Use
  Company Number: FR-BRISTOL-MYERS SQUIBB COMPANY-17156464

PATIENT
  Age: 77 Year
  Sex: Female

DRUGS (1)
  1. COUMADIN TABS [Suspect]
     Route: 048
     Dates: start: 2009, end: 20120903

REACTIONS (2)
  - Shock haemorrhagic [Fatal]
  - Septic shock [Fatal]
